FAERS Safety Report 11266785 (Version 1)
Quarter: 2015Q3

REPORT INFORMATION
  Report Type: Spontaneous
  Country: US (occurrence: US)
  Receive Date: 20150713
  Receipt Date: 20150713
  Transmission Date: 20151125
  Serious: No
  Sender: FDA-Public Use
  Company Number: US-TAKEDA-2013-03888

PATIENT
  Age: 73 Year
  Sex: Female
  Weight: 51.7 kg

DRUGS (1)
  1. VELCADE [Suspect]
     Active Substance: BORTEZOMIB
     Indication: PLASMA CELL MYELOMA
     Dosage: 1.96 MG, UNK
     Route: 058

REACTIONS (6)
  - Paraesthesia [Unknown]
  - Dizziness [Unknown]
  - Fatigue [Unknown]
  - Dry mouth [Unknown]
  - Dry skin [Unknown]
  - Joint swelling [Unknown]

NARRATIVE: CASE EVENT DATE: 20130415
